FAERS Safety Report 12967025 (Version 1)
Quarter: 2016Q4

REPORT INFORMATION
  Report Type: Spontaneous
  Country: US (occurrence: US)
  Receive Date: 20161121
  Receipt Date: 20161121
  Transmission Date: 20170207
  Serious: Yes (Life-Threatening)
  Sender: FDA-Public Use
  Company Number: None

PATIENT
  Age: 48 Year
  Sex: Male

DRUGS (1)
  1. VANCOMYCIN [Suspect]
     Active Substance: VANCOMYCIN
     Indication: PYREXIA
     Dosage: ?          OTHER FREQUENCY:ONE TIME DOSE;?
     Route: 042

REACTIONS (8)
  - Cardiac arrest [None]
  - Flushing [None]
  - Staring [None]
  - Muscle twitching [None]
  - Respiratory distress [None]
  - Bradycardia [None]
  - Musculoskeletal stiffness [None]
  - Dyspnoea [None]

NARRATIVE: CASE EVENT DATE: 20161103
